FAERS Safety Report 23752586 (Version 1)
Quarter: 2024Q2

REPORT INFORMATION
  Report Type: Spontaneous
  Country: US (occurrence: US)
  Receive Date: 20240417
  Receipt Date: 20240417
  Transmission Date: 20240716
  Serious: No
  Sender: FDA-Public Use
  Company Number: US-009507513-2403USA007404

PATIENT
  Age: 7 Year
  Sex: Male

DRUGS (12)
  1. PRIMAXIN IV [Suspect]
     Active Substance: CILASTATIN SODIUM\IMIPENEM
     Indication: Mycobacterium abscessus infection
     Dosage: UNK
     Route: 042
  2. PRIMAXIN IV [Suspect]
     Active Substance: CILASTATIN SODIUM\IMIPENEM
     Indication: Mastoiditis
  3. PRIMAXIN IV [Suspect]
     Active Substance: CILASTATIN SODIUM\IMIPENEM
     Indication: Otitis media
  4. LINEZOLID [Concomitant]
     Active Substance: LINEZOLID
     Indication: Mycobacterium abscessus infection
     Dosage: UNK
     Route: 048
  5. LINEZOLID [Concomitant]
     Active Substance: LINEZOLID
     Indication: Mastoiditis
  6. LINEZOLID [Concomitant]
     Active Substance: LINEZOLID
     Indication: Otitis media
  7. AZITHROMYCIN [Concomitant]
     Active Substance: AZITHROMYCIN
     Indication: Mycobacterium abscessus infection
     Dosage: UNK
     Route: 048
  8. AZITHROMYCIN [Concomitant]
     Active Substance: AZITHROMYCIN
     Indication: Mastoiditis
  9. AZITHROMYCIN [Concomitant]
     Active Substance: AZITHROMYCIN
     Indication: Otitis media
  10. TIGECYCLINE [Concomitant]
     Active Substance: TIGECYCLINE
     Indication: Mycobacterium abscessus infection
     Dosage: UNK
     Route: 042
  11. TIGECYCLINE [Concomitant]
     Active Substance: TIGECYCLINE
     Indication: Mastoiditis
  12. TIGECYCLINE [Concomitant]
     Active Substance: TIGECYCLINE
     Indication: Otitis media

REACTIONS (1)
  - Off label use [Unknown]
